FAERS Safety Report 5927878-4 (Version None)
Quarter: 2008Q4

REPORT INFORMATION
  Report Type: 
  Country: None (occurrence: None)
  Receive Date: 20081017
  Receipt Date: 20081017
  Transmission Date: 20090506
  Serious: Yes (Hospitalization)
  Sender: FDA-Public Use
  Company Number: None

PATIENT
  Age: 64 Year
  Sex: Male
  Weight: 73.0291 kg

DRUGS (6)
  1. RITUXAN [Suspect]
  2. THALIDOMIDE [Suspect]
  3. PREDNISONE TAB [Suspect]
  4. ETOPOSIDE [Suspect]
  5. PROCARBAZIEN [Suspect]
  6. CYTOXAN [Suspect]

REACTIONS (8)
  - ABDOMINAL PAIN LOWER [None]
  - CONDITION AGGRAVATED [None]
  - HYPOPHAGIA [None]
  - LUNG CONSOLIDATION [None]
  - NAUSEA [None]
  - NEUTROPHIL COUNT DECREASED [None]
  - PLEURAL EFFUSION [None]
  - VOMITING [None]
